FAERS Safety Report 19901397 (Version 1)
Quarter: 2021Q3

REPORT INFORMATION
  Report Type: Spontaneous
  Country: FR (occurrence: FR)
  Receive Date: 20210929
  Receipt Date: 20210929
  Transmission Date: 20211014
  Serious: Yes (Other)
  Sender: FDA-Public Use
  Company Number: FR-LUNDBECK-DKLU3039109

PATIENT
  Age: 14 Year
  Sex: Male
  Weight: 42 kg

DRUGS (4)
  1. LAMOTRIGINE. [Interacting]
     Active Substance: LAMOTRIGINE
     Indication: EPILEPSY
     Dosage: 100 MG AND 50 MG/DAY
     Route: 048
  2. MICROPAKINE [Interacting]
     Active Substance: VALPROATE SODIUM
     Indication: EPILEPSY
     Dosage: 1?0?1 LONG TERM
     Route: 048
  3. EPIDYOLEX [Suspect]
     Active Substance: CANNABIDIOL
     Indication: EPILEPSY
     Dosage: 3.8ML MORNING AND EVENING LONG TERM
     Route: 048
     Dates: start: 202101, end: 202106
  4. URBANYL [Suspect]
     Active Substance: CLOBAZAM
     Indication: EPILEPSY
     Dosage: 5 MG IN THE MORNING AND 10 MG IN THE EVENING, LONG?TERM
     Route: 048

REACTIONS (2)
  - Hepatic enzyme increased [Recovering/Resolving]
  - Asthenia [Recovered/Resolved]

NARRATIVE: CASE EVENT DATE: 202104
